FAERS Safety Report 14728517 (Version 1)
Quarter: 2018Q2

REPORT INFORMATION
  Report Type: Spontaneous
  Country: US (occurrence: US)
  Receive Date: 20180402
  Receipt Date: 20180402
  Transmission Date: 20180711
  Serious: No
  Sender: FDA-Public Use
  Company Number: None

PATIENT
  Sex: Female

DRUGS (1)
  1. DROSPIRENONE-ETHINYL [Suspect]
     Active Substance: DROSPIRENONE\ETHINYL ESTRADIOL
     Indication: CONTRACEPTION
     Route: 048

REACTIONS (1)
  - Urine odour abnormal [None]
